FAERS Safety Report 9940022 (Version 1)
Quarter: 2014Q1

REPORT INFORMATION
  Report Type: Report from Study
  Country: US (occurrence: US)
  Receive Date: 20140303
  Receipt Date: 20140303
  Transmission Date: 20141002
  Serious: No
  Sender: FDA-Public Use
  Company Number: US-ABBVIE-13P-163-1035249-00

PATIENT
  Sex: Female

DRUGS (2)
  1. HUMIRA PEN [Suspect]
     Indication: PSORIASIS
     Dates: start: 2012
  2. TRICYCLEN BIRTH CONTROL [Concomitant]
     Indication: CONTRACEPTION

REACTIONS (3)
  - Mononucleosis syndrome [Recovered/Resolved]
  - Streptococcal infection [Recovered/Resolved]
  - Malaise [Recovered/Resolved]
